FAERS Safety Report 14186899 (Version 1)
Quarter: 2017Q4

REPORT INFORMATION
  Report Type: Spontaneous
  Country: US (occurrence: US)
  Receive Date: 20171114
  Receipt Date: 20171114
  Transmission Date: 20180321
  Serious: No
  Sender: FDA-Public Use
  Company Number: US-CELGENEUS-USA-20171103492

PATIENT

DRUGS (1)
  1. OTEZLA [Suspect]
     Active Substance: APREMILAST
     Indication: PSORIASIS
     Route: 048

REACTIONS (5)
  - Psoriasis [Unknown]
  - Muscular weakness [Unknown]
  - Head discomfort [Unknown]
  - Ligament disorder [Unknown]
  - Tinnitus [Unknown]
